FAERS Safety Report 5508065-0 (Version None)
Quarter: 2007Q4

REPORT INFORMATION
  Report Type: 
  Country: None (occurrence: None)
  Receive Date: 20071106
  Receipt Date: 20071024
  Transmission Date: 20080405
  Serious: Yes (Hospitalization)
  Sender: FDA-Public Use
  Company Number: US-SHR-US-2007-002816

PATIENT
  Age: 36 Year
  Sex: Female

DRUGS (12)
  1. BETASERON [Suspect]
     Indication: RELAPSING-REMITTING MULTIPLE SCLEROSIS
     Dosage: 8 MIU, EVERY 2D
     Route: 058
     Dates: start: 20060925, end: 20070411
  2. BETASERON [Suspect]
     Dosage: 8 MIU, EVERY 2D
     Route: 058
     Dates: start: 20070418, end: 20070509
  3. BETASERON [Suspect]
     Dosage: 8 MIU, EVERY 2D
     Route: 058
     Dates: start: 20070529
  4. BETHANECHOL [Concomitant]
     Indication: URINARY INCONTINENCE
  5. BUTALBITAL [Concomitant]
     Indication: HEADACHE
  6. TRAZODONE HCL [Concomitant]
  7. AMITRIPTYLINE HCL [Concomitant]
     Indication: INSOMNIA
  8. BACLOFEN [Concomitant]
  9. PRILOSEC [Concomitant]
     Dates: start: 20070501
  10. BACTRIM [Concomitant]
     Indication: URINARY TRACT INFECTION
     Dates: start: 20070501
  11. SOLU-MEDROL [Concomitant]
  12. LOVENOX [Concomitant]

REACTIONS (19)
  - ABDOMINAL PAIN [None]
  - ABDOMINAL PAIN UPPER [None]
  - BACK PAIN [None]
  - CATHETER RELATED INFECTION [None]
  - DECREASED APPETITE [None]
  - GASTRIC ULCER HAEMORRHAGE [None]
  - HEADACHE [None]
  - INJECTION SITE ERYTHEMA [None]
  - KIDNEY INFECTION [None]
  - MULTIPLE SCLEROSIS [None]
  - NUCLEAR MAGNETIC RESONANCE IMAGING BRAIN ABNORMAL [None]
  - PYREXIA [None]
  - RENAL PAIN [None]
  - THERMAL BURN [None]
  - TREMOR [None]
  - URINARY TRACT INFECTION [None]
  - URINE ANALYSIS ABNORMAL [None]
  - URINE OUTPUT DECREASED [None]
  - WEIGHT DECREASED [None]
